FAERS Safety Report 12538211 (Version 2)
Quarter: 2016Q3

REPORT INFORMATION
  Report Type: Spontaneous
  Country: US (occurrence: US)
  Receive Date: 20160707
  Receipt Date: 20160808
  Transmission Date: 20161109
  Serious: Yes (Hospitalization, Other)
  Sender: FDA-Public Use
  Company Number: US-009507513-1606RUS013412

PATIENT
  Age: 75 Year
  Sex: Male

DRUGS (1)
  1. ENTEREG [Suspect]
     Active Substance: ALVIMOPAN
     Dosage: 12 MG, TWICE DAILY
     Route: 048
     Dates: start: 20160623, end: 20160626

REACTIONS (1)
  - Gastrointestinal anastomotic leak [Not Recovered/Not Resolved]

NARRATIVE: CASE EVENT DATE: 201606
